FAERS Safety Report 6888751-0 (Version None)
Quarter: 2010Q3

REPORT INFORMATION
  Report Type: 
  Country: None (occurrence: None)
  Receive Date: 20100730
  Receipt Date: 20071107
  Transmission Date: 20110219
  Serious: No
  Sender: FDA-Public Use
  Company Number: US-PFIZER INC-2007092536

PATIENT
  Sex: Female
  Weight: 52.272 kg

DRUGS (5)
  1. LIPITOR [Suspect]
     Indication: LOW DENSITY LIPOPROTEIN INCREASED
  2. NORVASC [Concomitant]
  3. TOPROL-XL [Concomitant]
  4. GLIPIZIDE [Concomitant]
  5. ASPIRINE [Concomitant]

REACTIONS (2)
  - LOW DENSITY LIPOPROTEIN INCREASED [None]
  - PALPITATIONS [None]
